FAERS Safety Report 9278977 (Version 1)
Quarter: 2013Q2

REPORT INFORMATION
  Report Type: Other
  Country: GB (occurrence: GB)
  Receive Date: 20130508
  Receipt Date: 20130508
  Transmission Date: 20140414
  Serious: Yes (Other)
  Sender: FDA-Public Use
  Company Number: GB-ACTAVIS-2013-08039

PATIENT
  Age: 65 Year
  Sex: Female

DRUGS (11)
  1. DIAZEPAM (UNKNOWN) [Suspect]
     Indication: MUSCLE SPASMS
     Dosage: 5 MG, UNKNOWN
     Route: 065
     Dates: start: 2006
  2. DIAZEPAM (UNKNOWN) [Suspect]
     Dosage: 2 MG, UNKNOWN
  3. DIAZEPAM (UNKNOWN) [Suspect]
     Dosage: 5 MG, QID
  4. MEBEVERINE [Suspect]
     Indication: IRRITABLE BOWEL SYNDROME
     Dosage: 135 MG, UNKNOWN
     Route: 065
     Dates: start: 20121229
  5. LEVOTHYROXINE (UNKNOWN) [Suspect]
     Indication: PRODUCT USED FOR UNKNOWN INDICATION
     Dosage: 100 MG, UNKNOWN
  6. LEVOTHYROXINE (UNKNOWN) [Suspect]
     Dosage: 25 MG, UNKNOWN
     Route: 065
  7. PARACETAMOL (UNKNOWN) [Suspect]
     Indication: HEADACHE
     Dosage: UNK UNK, UNKNOWN
     Route: 065
  8. CO-DYDRAMOL [Suspect]
     Indication: HEADACHE
     Dosage: UNK UNK, UNKNOWN
     Route: 065
  9. NOVOMIX [Suspect]
     Indication: DIABETES MELLITUS
     Dosage: UNK UNK, UNKNOWN
     Route: 065
     Dates: start: 201203
  10. INSULIN [Concomitant]
     Indication: DIABETES MELLITUS
     Route: 065
  11. COLOFAC                            /00139402/ [Concomitant]
     Indication: PRODUCT USED FOR UNKNOWN INDICATION
     Route: 065

REACTIONS (17)
  - Muscle spasms [Unknown]
  - Cyst [Unknown]
  - Renal failure chronic [Unknown]
  - Cow^s milk intolerance [Unknown]
  - Lactose intolerance [Unknown]
  - Mood swings [Unknown]
  - Panic attack [Unknown]
  - Anxiety [Unknown]
  - Memory impairment [Unknown]
  - Gait disturbance [Unknown]
  - Myopathy [Unknown]
  - Diabetes mellitus [Unknown]
  - Drug ineffective [Unknown]
  - Polyneuropathy [Unknown]
  - Headache [Unknown]
  - Musculoskeletal pain [Unknown]
  - Drug interaction [Unknown]
